FAERS Safety Report 11505248 (Version 1)
Quarter: 2015Q3

REPORT INFORMATION
  Report Type: Spontaneous
  Country: US (occurrence: US)
  Receive Date: 20150915
  Receipt Date: 20150915
  Transmission Date: 20151125
  Serious: Yes (Other)
  Sender: FDA-Public Use
  Company Number: US-ROCHE-789422

PATIENT
  Sex: Male

DRUGS (2)
  1. RIBAVIRIN. [Suspect]
     Active Substance: RIBAVIRIN
     Indication: HEPATITIS C
     Route: 065
  2. PEGASYS [Suspect]
     Active Substance: PEGINTERFERON ALFA-2A
     Indication: HEPATITIS C
     Route: 065

REACTIONS (9)
  - Seizure [Unknown]
  - Syncope [Unknown]
  - Back disorder [Unknown]
  - Tremor [Unknown]
  - Fall [Unknown]
  - Headache [Unknown]
  - Chest discomfort [Unknown]
  - Somnolence [Unknown]
  - Cough [Unknown]
